FAERS Safety Report 8379042-X (Version None)
Quarter: 2012Q2

REPORT INFORMATION
  Report Type: 
  Country: None (occurrence: None)
  Receive Date: 20120522
  Receipt Date: 20120522
  Transmission Date: 20120825
  Serious: Yes (Disabling)
  Sender: FDA-Public Use
  Company Number: None

PATIENT
  Age: 75 Year
  Sex: Female
  Weight: 61.2356 kg

DRUGS (2)
  1. LEVOFLOXACIN [Suspect]
     Indication: UPPER RESPIRATORY TRACT INFECTION
     Dosage: 750 MG 1 X DAY - 7 DAYS ORAL
     Route: 048
     Dates: start: 20120320, end: 20120327
  2. LEVOFLOXACIN [Suspect]
     Indication: COUGH
     Dosage: 750 MG 1 X DAY - 7 DAYS ORAL
     Route: 048
     Dates: start: 20120320, end: 20120327

REACTIONS (4)
  - ARTHROPATHY [None]
  - ASTHENIA [None]
  - MUSCULAR WEAKNESS [None]
  - PAIN IN EXTREMITY [None]
